FAERS Safety Report 5697680-X (Version None)
Quarter: 2008Q2

REPORT INFORMATION
  Report Type: 
  Country: None (occurrence: None)
  Receive Date: 20080408
  Receipt Date: 20080401
  Transmission Date: 20081010
  Serious: Yes (Disabling, Other)
  Sender: FDA-Public Use
  Company Number: A0718649A

PATIENT
  Age: 20 Year
  Sex: Male

DRUGS (6)
  1. DEXEDRINE [Suspect]
     Indication: ATTENTION DEFICIT/HYPERACTIVITY DISORDER
     Dosage: 50MG PER DAY
     Route: 048
     Dates: start: 20000101
  2. CLONIDINE HCL [Concomitant]
     Dosage: .1MG UNKNOWN
  3. TRILEPTAL [Concomitant]
     Dosage: 900MG TWICE PER DAY
     Route: 048
  4. TOPAMAX [Concomitant]
  5. SEROQUEL [Concomitant]
  6. HYTRIN [Concomitant]

REACTIONS (1)
  - DRUG INEFFECTIVE [None]
